FAERS Safety Report 5715724-3 (Version None)
Quarter: 2008Q2

REPORT INFORMATION
  Report Type: 
  Country: None (occurrence: None)
  Receive Date: 20080422
  Receipt Date: 20071015
  Transmission Date: 20081010
  Serious: Yes (Other)
  Sender: FDA-Public Use
  Company Number: S08-UKI-01481-01

PATIENT
  Age: 43 Year
  Sex: Female
  Weight: 85 kg

DRUGS (4)
  1. CITALOPRAM HYDROBROMIDE [Suspect]
     Dosage: 20 MG QD PO
     Route: 048
     Dates: start: 20051001
  2. AUGMENTIN '125' [Suspect]
     Dosage: 625 MG QD PO
     Route: 048
     Dates: start: 20071003
  3. LEVOTHYROXINE SODIUM [Suspect]
     Dosage: 150 MCG QD PO
     Route: 048
     Dates: start: 20030101
  4. NEXIUM [Suspect]
     Dosage: 40 MG QD PO
     Route: 048
     Dates: start: 20050101

REACTIONS (3)
  - RASH [None]
  - THROAT TIGHTNESS [None]
  - WHEEZING [None]
